FAERS Safety Report 8971201 (Version 1)
Quarter: 2012Q4

REPORT INFORMATION
  Report Type: 
  Country: US (occurrence: US)
  Receive Date: 20121218
  Receipt Date: 20121218
  Transmission Date: 20130627
  Serious: Yes (Hospitalization)
  Sender: FDA-Public Use
  Company Number: US-BAYER-2012-130399

PATIENT
  Age: 37 Year
  Sex: Female

DRUGS (8)
  1. YAZ [Suspect]
  2. BEYAZ [Suspect]
     Indication: BIRTH CONTROL
  3. ZIPRASIDONE [Concomitant]
     Dosage: 80 mg, UNK
     Dates: start: 20120426, end: 20120702
  4. HYDROXYZINE HCL [Concomitant]
     Dosage: 50 mg, UNK
     Dates: start: 20120426, end: 20120702
  5. PHENTERMINE [Concomitant]
     Dosage: 37.5 mg, UNK
     Dates: start: 20120616
  6. SERTRALINE [Concomitant]
     Dosage: 100 mg, UNK
     Dates: start: 20120702
  7. HALOPERIDOL [Concomitant]
     Dosage: 2 mg, UNK
     Dates: start: 20120702
  8. IV PAIN MEDICATION [Concomitant]

REACTIONS (3)
  - Pulmonary embolism [None]
  - Deep vein thrombosis [None]
  - Thrombophlebitis superficial [None]
